FAERS Safety Report 10642910 (Version 2)
Quarter: 2014Q4

REPORT INFORMATION
  Report Type: Spontaneous
  Country: US (occurrence: US)
  Receive Date: 20141210
  Receipt Date: 20141230
  Transmission Date: 20150529
  Serious: No
  Sender: FDA-Public Use
  Company Number: US-PFIZER INC-2014337054

PATIENT
  Age: 78 Year
  Sex: Female

DRUGS (25)
  1. ASMANEX [Suspect]
     Active Substance: MOMETASONE FUROATE
  2. LEVOTHYROXINE SODIUM. [Suspect]
     Active Substance: LEVOTHYROXINE SODIUM
     Dosage: UNK
  3. VENLAFAXINE HCL [Suspect]
     Active Substance: VENLAFAXINE HYDROCHLORIDE
     Dosage: UNK
  4. PLAQUENIL [Suspect]
     Active Substance: HYDROXYCHLOROQUINE SULFATE
     Dosage: UNK
  5. VIOXX [Suspect]
     Active Substance: ROFECOXIB
     Dosage: UNK
  6. VOLTAREN [Suspect]
     Active Substance: DICLOFENAC SODIUM
     Dosage: UNK
  7. DARVOCET [Suspect]
     Active Substance: ACETAMINOPHEN\PROPOXYPHENE HYDROCHLORIDE
     Dosage: UNK
  8. CIPROFLOXACIN. [Suspect]
     Active Substance: CIPROFLOXACIN
     Dosage: UNK
  9. LYRICA [Suspect]
     Active Substance: PREGABALIN
     Dosage: UNK
  10. SPIRIVA [Suspect]
     Active Substance: TIOTROPIUM BROMIDE MONOHYDRATE
     Dosage: UNK
  11. CODEINE [Suspect]
     Active Substance: CODEINE
     Dosage: UNK
  12. VYTORIN [Suspect]
     Active Substance: EZETIMIBE\SIMVASTATIN
     Dosage: UNK
  13. ALOR [Suspect]
     Active Substance: FLUOCINOLONE ACETONIDE
     Dosage: UNK
  14. LIALDA [Suspect]
     Active Substance: MESALAMINE
     Dosage: UNK
  15. CELEXA [Suspect]
     Active Substance: CITALOPRAM HYDROBROMIDE
     Dosage: UNK
  16. IODINE [Suspect]
     Active Substance: IODINE
     Dosage: UNK
  17. BEXTRA [Suspect]
     Active Substance: VALDECOXIB
     Dosage: UNK
  18. LISINOPRIL. [Suspect]
     Active Substance: LISINOPRIL
     Dosage: UNK
  19. ASPIRIN. [Suspect]
     Active Substance: ASPIRIN
     Dosage: UNK
  20. SULINDAC. [Suspect]
     Active Substance: SULINDAC
     Dosage: UNK
  21. AMPICILLIN [Suspect]
     Active Substance: AMPICILLIN
     Dosage: UNK
  22. MELOXICAM. [Suspect]
     Active Substance: MELOXICAM
     Dosage: UNK
  23. SKELAXIN [Suspect]
     Active Substance: METAXALONE
     Dosage: UNK
  24. TRAZODONE [Suspect]
     Active Substance: TRAZODONE HYDROCHLORIDE
     Dosage: UNK
  25. AZELASTINE [Suspect]
     Active Substance: AZELASTINE
     Dosage: UNK

REACTIONS (1)
  - Drug hypersensitivity [Unknown]

NARRATIVE: CASE EVENT DATE: 2014
